FAERS Safety Report 4516291-2 (Version None)
Quarter: 2004Q4

REPORT INFORMATION
  Report Type: 
  Country: None (occurrence: None)
  Receive Date: 20041027
  Receipt Date: 20040611
  Transmission Date: 20050328
  Serious: No
  Sender: FDA-Public Use
  Company Number: US079983

PATIENT
  Age: 66 Year
  Sex: Female

DRUGS (10)
  1. SENSIPAR [Suspect]
     Indication: HYPERPARATHYROIDISM SECONDARY
     Dosage: 30 MG, 1 IN 1 DAYS, PO
     Route: 048
     Dates: start: 20040521, end: 20040606
  2. CONJUGATED ESTROGEN [Concomitant]
  3. ALLOPURINOL [Concomitant]
  4. SIMVASTATIN [Concomitant]
  5. NEPHRO-CAPS [Concomitant]
  6. ACETYLSALICYLIC ACID [Concomitant]
  7. QUININE [Concomitant]
  8. METOPROLOL SUCCINATE [Concomitant]
  9. SEVELAMER HCL [Concomitant]
  10. PHOSLO [Concomitant]

REACTIONS (3)
  - HEADACHE [None]
  - NAUSEA [None]
  - VOMITING [None]
